FAERS Safety Report 19447989 (Version 1)
Quarter: 2021Q2

REPORT INFORMATION
  Report Type: Spontaneous
  Country: US (occurrence: US)
  Receive Date: 20210621
  Receipt Date: 20210621
  Transmission Date: 20210717
  Serious: No
  Sender: FDA-Public Use
  Company Number: None

PATIENT
  Age: 70 Year
  Sex: Male

DRUGS (1)
  1. SEMAGLUTIDE (SEMAGLUTIDE 0.5MG/0.375ML INJ,SOLN,PEN,1.5ML) [Suspect]
     Active Substance: SEMAGLUTIDE
     Route: 058
     Dates: start: 20201109, end: 20210618

REACTIONS (4)
  - Nausea [None]
  - Vomiting [None]
  - Cough [None]
  - Wheezing [None]

NARRATIVE: CASE EVENT DATE: 20210618
